FAERS Safety Report 7207918-5 (Version None)
Quarter: 2010Q4

REPORT INFORMATION
  Report Type: 
  Country: None (occurrence: None)
  Receive Date: 20101221
  Receipt Date: 20101210
  Transmission Date: 20110411
  Serious: Yes (Hospitalization)
  Sender: FDA-Public Use
  Company Number: JPI-P-013063

PATIENT
  Age: 64 Year
  Sex: Female
  Weight: 56.6996 kg

DRUGS (6)
  1. XYREM [Suspect]
     Indication: SLEEP DISORDER
     Dosage: (2 IN 1 D), ORAL, 7.5 GM (3.75 GM, 2 IN 1 D), ORAL, 7.5 GM (3.75 GM, 2 IN 1 D), ORAL
     Route: 048
     Dates: end: 20101113
  2. XYREM [Suspect]
     Indication: SLEEP DISORDER
     Dosage: (2 IN 1 D), ORAL, 7.5 GM (3.75 GM, 2 IN 1 D), ORAL, 7.5 GM (3.75 GM, 2 IN 1 D), ORAL
     Route: 048
     Dates: start: 20040101
  3. XYREM [Suspect]
     Indication: SLEEP DISORDER
     Dosage: (2 IN 1 D), ORAL, 7.5 GM (3.75 GM, 2 IN 1 D), ORAL, 7.5 GM (3.75 GM, 2 IN 1 D), ORAL
     Route: 048
     Dates: start: 20100101
  4. DIPHENHYDRAMINE [Suspect]
     Indication: NASOPHARYNGITIS
     Dosage: ORAL
     Route: 048
     Dates: start: 20101114
  5. DIPHENHYDRAMINE [Concomitant]
  6. MULTIPLE UNSPECIFIED MEDICATIONS [Concomitant]

REACTIONS (6)
  - CONFUSIONAL STATE [None]
  - HEADACHE [None]
  - INCOHERENT [None]
  - NASOPHARYNGITIS [None]
  - SOMNOLENCE [None]
  - TREMOR [None]
